FAERS Safety Report 6376406-0 (Version None)
Quarter: 2009Q3

REPORT INFORMATION
  Report Type: 
  Country: None (occurrence: None)
  Receive Date: 20090925
  Receipt Date: 20090212
  Transmission Date: 20100115
  Serious: Yes (Death, Life-Threatening, Hospitalization, Other)
  Sender: FDA-Public Use
  Company Number: CA-JNJFOC-20071203549

PATIENT
  Sex: Male

DRUGS (13)
  1. TMC125 [Suspect]
     Route: 048
  2. TMC125 [Suspect]
     Indication: HIV INFECTION
     Dosage: TEMPORARILY STOPPED
     Route: 048
  3. PREZISTA [Suspect]
     Route: 048
  4. PREZISTA [Suspect]
     Indication: HIV INFECTION
     Dosage: TEMPORARILY STOPPED
     Route: 048
  5. RALTEGRAVIR [Concomitant]
     Route: 048
  6. RALTEGRAVIR [Concomitant]
     Indication: HIV INFECTION
     Route: 048
  7. NORVIR [Concomitant]
     Route: 048
  8. NORVIR [Concomitant]
     Indication: HIV INFECTION
     Route: 048
  9. EPIVIR [Concomitant]
     Route: 048
  10. EPIVIR [Concomitant]
     Indication: HIV INFECTION
     Route: 048
  11. TENOFOVIR [Concomitant]
     Indication: HIV INFECTION
     Route: 065
  12. CASPOFUNGIN [Concomitant]
     Route: 065
  13. FUROSEMIDE [Concomitant]
     Route: 048

REACTIONS (7)
  - ANAEMIA [None]
  - CARDIAC FAILURE CONGESTIVE [None]
  - ENCEPHALITIS CYTOMEGALOVIRUS [None]
  - PERIOSTITIS [None]
  - PNEUMONIA [None]
  - RENAL FAILURE [None]
  - SYSTEMIC CANDIDA [None]
